FAERS Safety Report 7219256-5 (Version None)
Quarter: 2011Q1

REPORT INFORMATION
  Report Type: 
  Country: None (occurrence: None)
  Receive Date: 20110111
  Receipt Date: 20110103
  Transmission Date: 20110831
  Serious: No
  Sender: FDA-Public Use
  Company Number: US-PFIZER INC-2010144158

PATIENT
  Sex: Female

DRUGS (2)
  1. EFFEXOR XR [Suspect]
     Indication: DEPRESSION
     Dosage: 37.5 MG, 1X/DAY
     Route: 048
     Dates: start: 20100915, end: 20100901
  2. EFFEXOR XR [Suspect]
     Indication: ANXIETY
     Dosage: 75 MG, UNK
     Route: 048
     Dates: start: 20100901, end: 20101001

REACTIONS (5)
  - HEADACHE [None]
  - CONSTIPATION [None]
  - NAUSEA [None]
  - MALAISE [None]
  - DRUG INEFFECTIVE [None]
